FAERS Safety Report 23221636 (Version 1)
Quarter: 2023Q4

REPORT INFORMATION
  Report Type: Spontaneous
  Country: US (occurrence: US)
  Receive Date: 20231123
  Receipt Date: 20231123
  Transmission Date: 20240110
  Serious: No
  Sender: FDA-Public Use
  Company Number: US-002147023-NVSC2023US248538

PATIENT
  Weight: 83 kg

DRUGS (1)
  1. KYMRIAH [Suspect]
     Active Substance: TISAGENLECLEUCEL
     Indication: Follicular lymphoma
     Dosage: 43 ML, ONCE/SINGLE (3.1 X10E8 CAR- POSITIVE VIABLE T CELLS)
     Route: 042
     Dates: start: 20231120

REACTIONS (1)
  - Chills [Not Recovered/Not Resolved]
